FAERS Safety Report 4633992-6 (Version None)
Quarter: 2005Q2

REPORT INFORMATION
  Report Type: 
  Country: None (occurrence: None)
  Receive Date: 20050407
  Receipt Date: 20050331
  Transmission Date: 20051028
  Serious: Yes (Hospitalization)
  Sender: FDA-Public Use
  Company Number: 05P-163-0295773-00

PATIENT
  Age: 74 Year
  Sex: Male
  Weight: 68.0396 kg

DRUGS (4)
  1. HUMIRA [Suspect]
     Indication: RHEUMATOID ARTHRITIS
     Dosage: 40 MG, 1 IN 2 WK, SUBCUTANEOUS
     Route: 058
     Dates: start: 20040927
  2. LISINOPRIL [Concomitant]
  3. PREDNISONE [Concomitant]
  4. DARVOCET [Concomitant]

REACTIONS (3)
  - EXCORIATION [None]
  - FALL [None]
  - HIP FRACTURE [None]
